FAERS Safety Report 4305070-7 (Version None)
Quarter: 2004Q1

REPORT INFORMATION
  Report Type: 
  Country: None (occurrence: None)
  Receive Date: 20040226
  Receipt Date: 20040202
  Transmission Date: 20041129
  Serious: Yes (Death, Life-Threatening, Disabling, Other)
  Sender: FDA-Public Use
  Company Number: US-GLAXOSMITHKLINE-A0496075A

PATIENT
  Age: 58 Year
  Sex: Female
  Weight: 95.5 kg

DRUGS (13)
  1. LOTRONEX [Suspect]
     Indication: IRRITABLE BOWEL SYNDROME
     Dosage: 1MG TWICE PER DAY
     Route: 048
     Dates: start: 20030509
  2. LORTAB [Concomitant]
  3. FIORICET [Concomitant]
  4. LASIX [Concomitant]
  5. TRANXENE [Concomitant]
  6. MELLARIL [Concomitant]
  7. ELAVIL [Concomitant]
  8. LOMOTIL [Concomitant]
  9. UNITHROID [Concomitant]
  10. PRINZIDE [Concomitant]
  11. PROCARDIA [Concomitant]
  12. PREMARIN [Concomitant]
  13. BENTYL [Concomitant]

REACTIONS (4)
  - COMA [None]
  - DEPRESSED LEVEL OF CONSCIOUSNESS [None]
  - PULMONARY EMBOLISM [None]
  - RESPIRATORY ARREST [None]
